FAERS Safety Report 21974124 (Version 1)
Quarter: 2023Q1

REPORT INFORMATION
  Report Type: Spontaneous
  Country: GR (occurrence: GR)
  Receive Date: 20230209
  Receipt Date: 20230209
  Transmission Date: 20230418
  Serious: Yes (Other)
  Sender: FDA-Public Use
  Company Number: GR-SERVIER-S23000378

PATIENT
  Age: 84 Year
  Sex: Male

DRUGS (18)
  1. ONIVYDE [Suspect]
     Active Substance: IRINOTECAN HYDROCHLORIDE
     Indication: Pancreatic carcinoma
     Dosage: 130 MG/M2
     Route: 050
     Dates: start: 20221116, end: 20221116
  2. ONIVYDE [Suspect]
     Active Substance: IRINOTECAN HYDROCHLORIDE
     Dosage: 130 MG/M2
     Route: 050
     Dates: start: 20221130, end: 20221130
  3. ONIVYDE [Suspect]
     Active Substance: IRINOTECAN HYDROCHLORIDE
     Dosage: 130 MG/M2
     Route: 050
     Dates: start: 20221221, end: 20221221
  4. LEUCOVORIN [Suspect]
     Active Substance: LEUCOVORIN
     Indication: Pancreatic carcinoma
     Dosage: 400 MG/M2
     Dates: start: 20221116, end: 20221116
  5. LEUCOVORIN [Suspect]
     Active Substance: LEUCOVORIN
     Dosage: 400 MG/M2
     Dates: start: 20221130, end: 20221130
  6. LEUCOVORIN [Suspect]
     Active Substance: LEUCOVORIN
     Dosage: 400 MG/M2
     Dates: start: 20221221, end: 20221221
  7. FLUOROURACIL [Suspect]
     Active Substance: FLUOROURACIL
     Indication: Pancreatic carcinoma
     Dosage: 1800 MG/M2
     Dates: start: 20221116, end: 20221116
  8. FLUOROURACIL [Suspect]
     Active Substance: FLUOROURACIL
     Dosage: 1800 MG/M2
     Dates: start: 20221130, end: 20221130
  9. FLUOROURACIL [Suspect]
     Active Substance: FLUOROURACIL
     Dosage: 1800 MG/M2
     Dates: start: 20221221, end: 20221221
  10. GLUCOPHAGE [Concomitant]
     Active Substance: METFORMIN HYDROCHLORIDE
     Indication: Type 2 diabetes mellitus
     Dosage: 850 MG, BID
     Route: 050
  11. NEXIUM [Concomitant]
     Active Substance: ESOMEPRAZOLE MAGNESIUM
     Indication: Gastrointestinal disorder prophylaxis
     Dosage: 20 MG, QD
     Route: 050
  12. PANADOL [Concomitant]
     Active Substance: ACETAMINOPHEN
     Indication: Pain
     Dosage: 500 MG, BID
     Route: 050
  13. BROMAZEPAM [Concomitant]
     Active Substance: BROMAZEPAM
     Indication: Sedative therapy
     Dosage: 1.5 MG, QD
     Route: 050
  14. UMECLIDINIUM BROMIDE\VILANTEROL TRIFENATATE [Concomitant]
     Active Substance: UMECLIDINIUM BROMIDE\VILANTEROL TRIFENATATE
     Dosage: UNK, QD
     Route: 050
  15. TAMSULOSIN [Concomitant]
     Active Substance: TAMSULOSIN
     Indication: Benign prostatic hyperplasia
     Dosage: UNK, QD
     Route: 050
  16. LYRICA [Concomitant]
     Active Substance: PREGABALIN
     Indication: Product used for unknown indication
     Dosage: 75 MG, QD
     Route: 050
  17. LYRICA [Concomitant]
     Active Substance: PREGABALIN
     Dosage: 150 MG, QD
     Route: 050
  18. DIOVAN [Concomitant]
     Active Substance: VALSARTAN
     Indication: Hypertension
     Dosage: 40 MG, QD
     Route: 050

REACTIONS (2)
  - Injection site reaction [Recovered/Resolved]
  - Injection site reaction [Recovered/Resolved]

NARRATIVE: CASE EVENT DATE: 20221116
